FAERS Safety Report 5271853-2 (Version None)
Quarter: 2007Q1

REPORT INFORMATION
  Report Type: 
  Country: None (occurrence: None)
  Receive Date: 20070321
  Receipt Date: 20070309
  Transmission Date: 20070707
  Serious: Yes (Other)
  Sender: FDA-Public Use
  Company Number: NL-PFIZER INC-2007019694

PATIENT
  Sex: Male
  Weight: 87 kg

DRUGS (5)
  1. LIPITOR [Suspect]
     Indication: DYSLIPIDAEMIA
     Route: 048
  2. ASPIRIN [Concomitant]
     Route: 048
  3. METOPROLOL SUCCINATE [Concomitant]
     Route: 048
  4. OMEPRAZOLE [Concomitant]
     Route: 048
  5. DICLOFENAC SODIUM [Concomitant]
     Route: 048

REACTIONS (6)
  - FATIGUE [None]
  - IMPAIRED WORK ABILITY [None]
  - MALAISE [None]
  - MYALGIA [None]
  - NAUSEA [None]
  - VOMITING [None]
